APPROVED DRUG PRODUCT: MISOPROSTOL
Active Ingredient: MISOPROSTOL
Strength: 0.2MG
Dosage Form/Route: TABLET;ORAL
Application: A076095 | Product #002 | TE Code: AB
Applicant: ANI PHARMACEUTICALS INC
Approved: Jul 10, 2002 | RLD: No | RS: No | Type: RX